FAERS Safety Report 8410975-1 (Version None)
Quarter: 2012Q2

REPORT INFORMATION
  Report Type: 
  Country: None (occurrence: None)
  Receive Date: 20120605
  Receipt Date: 20120531
  Transmission Date: 20120825
  Serious: Yes (Hospitalization)
  Sender: FDA-Public Use
  Company Number: US-BAYER-201032411NA

PATIENT
  Age: 48 Year
  Sex: Female
  Weight: 83.9 kg

DRUGS (6)
  1. YASMIN [Suspect]
     Indication: CONTRACEPTION
     Dosage: UNK UNK, UNK
     Route: 048
     Dates: start: 20040101, end: 20050101
  2. MOTRIN [Concomitant]
  3. NAPROXEN [Concomitant]
  4. PREVACID [Concomitant]
  5. ANTIMIGRAINE PREPARATIONS [Concomitant]
  6. IBUPROFEN (ADVIL) [Concomitant]

REACTIONS (2)
  - ABDOMINAL PAIN UPPER [None]
  - MESENTERIC VEIN THROMBOSIS [None]
